FAERS Safety Report 7987445-8 (Version None)
Quarter: 2011Q4

REPORT INFORMATION
  Report Type: 
  Country: None (occurrence: None)
  Receive Date: 20111216
  Receipt Date: 20111028
  Transmission Date: 20120403
  Serious: No
  Sender: FDA-Public Use
  Company Number: US-BRISTOL-MYERS SQUIBB COMPANY-16203655

PATIENT
  Age: 46 Year
  Sex: Female

DRUGS (3)
  1. WELLBUTRIN [Concomitant]
  2. LAMICTAL [Concomitant]
  3. ABILIFY [Suspect]
     Indication: DEPRESSION

REACTIONS (2)
  - MUSCLE SPASMS [None]
  - DIZZINESS [None]
